FAERS Safety Report 15181008 (Version 1)
Quarter: 2018Q3

REPORT INFORMATION
  Report Type: Other
  Country: CA (occurrence: CA)
  Receive Date: 20180723
  Receipt Date: 20180723
  Transmission Date: 20181010
  Serious: Yes (Other)
  Sender: FDA-Public Use
  Company Number: CA-APOTEX-2018AP017277

PATIENT
  Age: 55 Year
  Sex: Male

DRUGS (1)
  1. QUETIAPINE. [Suspect]
     Active Substance: QUETIAPINE
     Indication: PRODUCT USED FOR UNKNOWN INDICATION
     Dosage: UNK
     Route: 048

REACTIONS (13)
  - Feeling guilty [Unknown]
  - Extrapyramidal disorder [Unknown]
  - Anxiety [Unknown]
  - Suicidal ideation [Unknown]
  - Insomnia [Unknown]
  - Depression [Unknown]
  - Impulse-control disorder [Unknown]
  - Hyperprolactinaemia [Unknown]
  - Sexual dysfunction [Unknown]
  - Delusion [Unknown]
  - Akathisia [Unknown]
  - Emotional poverty [Unknown]
  - Substance abuse [Unknown]
